FAERS Safety Report 7718168-8 (Version None)
Quarter: 2011Q3

REPORT INFORMATION
  Report Type: 
  Country: None (occurrence: None)
  Receive Date: 20110830
  Receipt Date: 20110825
  Transmission Date: 20111222
  Serious: Yes (Hospitalization)
  Sender: FDA-Public Use
  Company Number: BR-ROCHE-798995

PATIENT
  Sex: Female

DRUGS (1)
  1. ACTEMRA [Suspect]
     Route: 042
     Dates: start: 20100201, end: 20110101

REACTIONS (1)
  - MUSCULOSKELETAL DISORDER [None]
